FAERS Safety Report 21507911 (Version 2)
Quarter: 2022Q4

REPORT INFORMATION
  Report Type: Spontaneous
  Country: JP (occurrence: JP)
  Receive Date: 20221026
  Receipt Date: 20221222
  Transmission Date: 20230113
  Serious: Yes (Other)
  Sender: FDA-Public Use
  Company Number: JP-BAYER-2022A136638

PATIENT
  Sex: Female

DRUGS (16)
  1. EYLEA [Suspect]
     Active Substance: AFLIBERCEPT
     Indication: Macular oedema
     Dosage: 2 MG, ONCE, LEFT EYE,SOLUTION FOR INJECTION IN PRE-FILLED SYRINGE(STRENGTH: 40MG/ML)
     Route: 031
     Dates: start: 20181031, end: 20181031
  2. EYLEA [Suspect]
     Active Substance: AFLIBERCEPT
     Indication: Retinal vein occlusion
     Dosage: 2 MG, ONCE, LEFT EYE,SOLUTION FOR INJECTION IN PRE-FILLED SYRINGE(STRENGTH: 40MG/ML)
     Route: 031
     Dates: start: 20181128, end: 20181128
  3. EYLEA [Suspect]
     Active Substance: AFLIBERCEPT
     Dosage: 2 MG, ONCE, LEFT EYE,SOLUTION FOR INJECTION IN PRE-FILLED SYRINGE(STRENGTH: 40MG/ML)
     Route: 031
     Dates: start: 20181226, end: 20181226
  4. EYLEA [Suspect]
     Active Substance: AFLIBERCEPT
     Dosage: 2 MG, ONCE, LEFT EYE,SOLUTION FOR INJECTION IN PRE-FILLED SYRINGE(STRENGTH: 40MG/ML)
     Route: 031
     Dates: start: 20191002, end: 20191002
  5. EYLEA [Suspect]
     Active Substance: AFLIBERCEPT
     Dosage: 2 MG, ONCE, LEFT EYE,SOLUTION FOR INJECTION IN PRE-FILLED SYRINGE(STRENGTH: 40MG/ML)
     Route: 031
     Dates: start: 20191113, end: 20191113
  6. EYLEA [Suspect]
     Active Substance: AFLIBERCEPT
     Dosage: 2 MG, ONCE, LEFT EYE,SOLUTION FOR INJECTION IN PRE-FILLED SYRINGE(STRENGTH: 40MG/ML)
     Route: 031
     Dates: start: 20200325, end: 20200325
  7. EYLEA [Suspect]
     Active Substance: AFLIBERCEPT
     Dosage: 2 MG, ONCE, LEFT EYE,SOLUTION FOR INJECTION IN PRE-FILLED SYRINGE(STRENGTH: 40MG/ML)
     Route: 031
     Dates: start: 20200528, end: 20200528
  8. EYLEA [Suspect]
     Active Substance: AFLIBERCEPT
     Dosage: 2 MG, ONCE, LEFT EYE,SOLUTION FOR INJECTION IN PRE-FILLED SYRINGE(STRENGTH: 40MG/ML)
     Route: 031
     Dates: start: 20200730, end: 20200730
  9. EYLEA [Suspect]
     Active Substance: AFLIBERCEPT
     Dosage: 2 MG, ONCE, LEFT EYE,SOLUTION FOR INJECTION IN PRE-FILLED SYRINGE(STRENGTH: 40MG/ML)
     Route: 031
     Dates: start: 20200929, end: 20200929
  10. EYLEA [Suspect]
     Active Substance: AFLIBERCEPT
     Dosage: 2 MG, ONCE, LEFT EYE,SOLUTION FOR INJECTION IN PRE-FILLED SYRINGE(STRENGTH: 40MG/ML)
     Route: 031
     Dates: start: 20201126, end: 20201126
  11. EYLEA [Suspect]
     Active Substance: AFLIBERCEPT
     Dosage: 2 MG, ONCE, LEFT EYE,SOLUTION FOR INJECTION IN PRE-FILLED SYRINGE(STRENGTH: 40MG/ML)
     Route: 031
     Dates: start: 20210208, end: 20210208
  12. EYLEA [Suspect]
     Active Substance: AFLIBERCEPT
     Dosage: 2 MG, ONCE, LEFT EYE,SOLUTION FOR INJECTION IN PRE-FILLED SYRINGE(STRENGTH: 40MG/ML)
     Route: 031
     Dates: start: 20210506, end: 20210506
  13. EYLEA [Suspect]
     Active Substance: AFLIBERCEPT
     Dosage: 2 MG, ONCE, LEFT EYE,SOLUTION FOR INJECTION IN PRE-FILLED SYRINGE(STRENGTH: 40MG/ML)
     Route: 031
     Dates: start: 20210819, end: 20210819
  14. EYLEA [Suspect]
     Active Substance: AFLIBERCEPT
     Dosage: 2 MG, ONCE, LEFT EYE,SOLUTION FOR INJECTION IN PRE-FILLED SYRINGE(STRENGTH: 40MG/ML)
     Route: 031
     Dates: start: 20211118, end: 20211118
  15. TRIAMCINOLONE [Concomitant]
     Active Substance: TRIAMCINOLONE
     Indication: Retinal vein occlusion
     Dosage: SUB-TENON INJECTION, 2 TIMES
  16. TRIAMCINOLONE [Concomitant]
     Active Substance: TRIAMCINOLONE
     Indication: Macular oedema

REACTIONS (3)
  - Blindness unilateral [Unknown]
  - Non-infectious endophthalmitis [Recovering/Resolving]
  - Non-infectious endophthalmitis [Recovering/Resolving]

NARRATIVE: CASE EVENT DATE: 20210824
